FAERS Safety Report 15126134 (Version 4)
Quarter: 2018Q3

REPORT INFORMATION
  Report Type: Report from Study
  Country: JP (occurrence: JP)
  Receive Date: 20180710
  Receipt Date: 20180831
  Transmission Date: 20181010
  Serious: Yes (Hospitalization)
  Sender: FDA-Public Use
  Company Number: JP-PFIZER INC-2018264211

PATIENT
  Age: 47 Year
  Sex: Male
  Weight: 58.1 kg

DRUGS (14)
  1. BOSUTINIB [Suspect]
     Active Substance: BOSUTINIB
     Indication: CHRONIC MYELOID LEUKAEMIA
     Dosage: 300 MG, 1X/DAY
     Route: 048
     Dates: start: 20090730
  2. BIOFERMIN /01617201/ [Concomitant]
     Active Substance: BACILLUS SUBTILIS\LACTOBACILLUS ACIDOPHILUS\STREPTOCOCCUS FAECAIS
     Indication: CONSTIPATION
     Dosage: UNK
     Dates: start: 20180522
  3. EPERISONE HYDROCHLORIDE [Concomitant]
     Active Substance: EPERISONE HYDROCHLORIDE
     Indication: CEREBRAL PALSY
     Dosage: UNK
     Dates: start: 20180522
  4. MECOBALAMIN [Concomitant]
     Active Substance: METHYLCOBALAMIN
     Indication: CEREBRAL PALSY
     Dosage: UNK
     Dates: start: 20080522
  5. BIOFERMIN /01617201/ [Concomitant]
     Active Substance: BACILLUS SUBTILIS\LACTOBACILLUS ACIDOPHILUS\STREPTOCOCCUS FAECAIS
     Indication: DIARRHOEA
  6. HIRUDOID SOFT [Concomitant]
     Active Substance: GLYCOSAMINOGLYCANS
     Indication: RASH
     Dosage: UNK
     Dates: start: 20150127
  7. BETAMETHASONE W/DEXCHLORPHENIRAMINE MALEATE [Concomitant]
     Indication: PARALYSIS
     Dosage: UNK
     Dates: start: 20180522
  8. GOSHAJINKIGAN [Concomitant]
     Active Substance: HERBALS
     Indication: DEPRESSION
     Dosage: UNK
     Dates: start: 20180522
  9. DICLOFENAC SODIUM. [Concomitant]
     Active Substance: DICLOFENAC SODIUM
     Indication: CEREBRAL PALSY
     Dosage: UNK
     Dates: start: 20150710
  10. KAKKONTO /07985901/ [Concomitant]
     Active Substance: HERBALS
     Indication: CEREBRAL PALSY
     Dosage: UNK
     Dates: start: 20180522
  11. FURSULTIAMINE [Concomitant]
     Active Substance: FURSULTIAMINE
     Indication: CEREBRAL PALSY
     Dosage: UNK
     Dates: start: 20180522
  12. FEXOFENADINE HYDROCHLORIDE. [Concomitant]
     Active Substance: FEXOFENADINE HYDROCHLORIDE
     Indication: DERMATITIS ATOPIC
     Dosage: UNK
  13. ACETAMINOPHEN. [Concomitant]
     Active Substance: ACETAMINOPHEN
     Indication: PYREXIA
     Dosage: UNK
     Dates: start: 20180322
  14. GOREISAN /08015901/ [Concomitant]
     Active Substance: HERBALS
     Indication: ANXIETY
     Dosage: UNK
     Dates: start: 20180522

REACTIONS (1)
  - Musculoskeletal stiffness [Recovered/Resolved]

NARRATIVE: CASE EVENT DATE: 20180628
